FAERS Safety Report 8006139-6 (Version None)
Quarter: 2011Q4

REPORT INFORMATION
  Report Type: 
  Country: None (occurrence: None)
  Receive Date: 20111226
  Receipt Date: 20111213
  Transmission Date: 20120403
  Serious: Yes (Life-Threatening, Hospitalization)
  Sender: FDA-Public Use
  Company Number: FR-ELI_LILLY_AND_COMPANY-FR201112003243

PATIENT
  Sex: Female

DRUGS (10)
  1. FLUOXETINE HYDROCHLORIDE [Suspect]
     Indication: DEPRESSION
     Route: 048
  2. TERCIAN [Concomitant]
     Route: 048
  3. NEXIUM [Concomitant]
     Route: 048
  4. ZOLPIDEM [Concomitant]
     Indication: INSOMNIA
     Route: 048
  5. PRAVASTATIN [Concomitant]
  6. NOCTAMIDE [Concomitant]
     Indication: INSOMNIA
     Route: 048
  7. EXFORGE [Concomitant]
  8. PREVISCAN [Concomitant]
  9. TERCIAN [Concomitant]
     Indication: DEPRESSION
     Route: 048
  10. ATARAX [Concomitant]
     Indication: DEPRESSION
     Route: 048

REACTIONS (5)
  - COMA [None]
  - SUICIDE ATTEMPT [None]
  - PNEUMONIA ASPIRATION [None]
  - HYPOTENSION [None]
  - OVERDOSE [None]
